FAERS Safety Report 8802856 (Version 1)
Quarter: 2012Q4

REPORT INFORMATION
  Report Type: 
  Country: US (occurrence: US)
  Receive Date: 20120921
  Receipt Date: 20120921
  Transmission Date: 20130627
  Serious: No
  Sender: FDA-Public Use
  Company Number: US-009507513-1208USA009745

PATIENT
  Age: 57 Year
  Sex: Male

DRUGS (2)
  1. PEG-INTRON [Suspect]
     Indication: HEPATITIS C
     Dosage: UNK
     Dates: start: 20120719, end: 20120816
  2. REBETOL [Suspect]
     Indication: HEPATITIS C
     Dosage: UNK
     Dates: start: 20120719, end: 20120816

REACTIONS (2)
  - Injection site erythema [Unknown]
  - Drug ineffective [Unknown]
